FAERS Safety Report 4698389-1 (Version None)
Quarter: 2005Q2

REPORT INFORMATION
  Report Type: 
  Country: None (occurrence: None)
  Receive Date: 20050621
  Receipt Date: 20050608
  Transmission Date: 20051028
  Serious: Yes (Hospitalization)
  Sender: FDA-Public Use
  Company Number: FRP05000466

PATIENT
  Sex: Female

DRUGS (3)
  1. ACTONEL [Suspect]
     Indication: OSTEOPOROSIS
     Dosage: 35 MG, 1/WEEK, ORAL
     Route: 048
  2. CACIT D3 (CALCIUM CARBONATE, COLECALCIFEROL) [Concomitant]
  3. VITAMIN D [Concomitant]

REACTIONS (1)
  - PANCREATITIS ACUTE [None]
